FAERS Safety Report 14013097 (Version 2)
Quarter: 2017Q4

REPORT INFORMATION
  Report Type: Spontaneous
  Country: US (occurrence: US)
  Receive Date: 20170926
  Receipt Date: 20171121
  Transmission Date: 20180321
  Serious: Yes (Hospitalization)
  Sender: FDA-Public Use
  Company Number: US-ELI_LILLY_AND_COMPANY-US201709007175

PATIENT
  Sex: Female

DRUGS (6)
  1. TRULICITY [Suspect]
     Active Substance: DULAGLUTIDE
     Indication: TYPE 2 DIABETES MELLITUS
     Dosage: 1.5 MG, WEEKLY (1/W)
     Route: 058
     Dates: start: 201701
  2. TAMOXIFEN [Concomitant]
     Active Substance: TAMOXIFEN
     Indication: NEOPLASM MALIGNANT
  3. TRULICITY [Suspect]
     Active Substance: DULAGLUTIDE
     Dosage: UNK UNK, UNKNOWN
     Route: 065
  4. ARIMIDEX [Concomitant]
     Active Substance: ANASTROZOLE
     Indication: NEOPLASM MALIGNANT
  5. TANZEUM [Concomitant]
     Active Substance: ALBIGLUTIDE
     Indication: PRODUCT USED FOR UNKNOWN INDICATION
     Dosage: UNK
     Dates: start: 20161215, end: 20170608
  6. METFORMIN [Concomitant]
     Active Substance: METFORMIN HYDROCHLORIDE
     Indication: DIABETES MELLITUS
     Dosage: UNK

REACTIONS (7)
  - Breast cancer recurrent [Not Recovered/Not Resolved]
  - Injection site erythema [Not Recovered/Not Resolved]
  - Weight increased [Not Recovered/Not Resolved]
  - Injection site pruritus [Not Recovered/Not Resolved]
  - Injection site infection [Unknown]
  - Fatigue [Not Recovered/Not Resolved]
  - Injection site rash [Recovered/Resolved]
